FAERS Safety Report 4652729-8 (Version None)
Quarter: 2005Q2

REPORT INFORMATION
  Report Type: 
  Country: None (occurrence: None)
  Receive Date: 20050502
  Receipt Date: 20050121
  Transmission Date: 20051028
  Serious: Yes (Hospitalization)
  Sender: FDA-Public Use
  Company Number: 2005-BP-01716PF

PATIENT
  Age: 54 Year
  Sex: Female

DRUGS (13)
  1. PRAMIPEXOLE [Suspect]
     Indication: RESTLESS LEGS SYNDROME
     Dosage: 2 IN 1 D
  2. NEURONTIN [Suspect]
     Indication: POLYNEUROPATHY
     Dosage: 1800 MG, PO
     Route: 048
     Dates: start: 20020101, end: 20040101
  3. ZYRTEC-D 12 HOUR [Suspect]
     Indication: HYPERSENSITIVITY
     Dosage: 2 IN 1 D
  4. CLONAZEPAM [Suspect]
     Indication: ANXIETY
     Dosage: 2 IN 1 D
  5. MIRTAZAPINE [Suspect]
     Indication: ILL-DEFINED DISORDER
  6. AMITRIPTYLINE HCL [Suspect]
     Indication: ILL-DEFINED DISORDER
  7. MONTELUKAST SODIUM (MONTELUKAST SODIUM) [Concomitant]
  8. COMBIVENT [Concomitant]
  9. MIRTAZAPINE [Concomitant]
  10. ESOMEPRAZOLE (ESOMEPRAZOLE) [Concomitant]
  11. SALBUTAMOL (SALBUTAMOL) [Concomitant]
  12. CALAMINE/CAMPHOR/DIPHENHYDRAMINE [Concomitant]
  13. BUPROPION (BUPROPION) [Concomitant]

REACTIONS (11)
  - ANXIETY [None]
  - ASTHMA [None]
  - BALANCE DISORDER [None]
  - CHRONIC OBSTRUCTIVE PULMONARY DISEASE [None]
  - CONDITION AGGRAVATED [None]
  - DENTAL OPERATION [None]
  - DISTURBANCE IN ATTENTION [None]
  - DIZZINESS [None]
  - MEMORY IMPAIRMENT [None]
  - MULTIPLE ALLERGIES [None]
  - SINUS DISORDER [None]
